FAERS Safety Report 23817709 (Version 1)
Quarter: 2024Q2

REPORT INFORMATION
  Report Type: Spontaneous
  Country: US (occurrence: None)
  Receive Date: 20240506
  Receipt Date: 20240506
  Transmission Date: 20240716
  Serious: Yes (Death)
  Sender: FDA-Public Use
  Company Number: US-ROCHE-3556948

PATIENT
  Sex: Male

DRUGS (12)
  1. XOLAIR [Suspect]
     Active Substance: OMALIZUMAB
     Indication: Asthma
     Dosage: INJECT ONE 75 MG SYRINGE ALONG WITH TWO 150 MG SYRINGES EVERY TWO WEEKS FOR TOTAL DOSE OF 375 MG.
     Route: 058
     Dates: start: 20210122
  2. XOLAIR [Suspect]
     Active Substance: OMALIZUMAB
  3. XOLAIR [Suspect]
     Active Substance: OMALIZUMAB
  4. AMOXICILLIN [Concomitant]
     Active Substance: AMOXICILLIN
  5. ALBUTEROL [Concomitant]
     Active Substance: ALBUTEROL
  6. ATORVASTATIN [Concomitant]
     Active Substance: ATORVASTATIN
  7. CHLORHEXIDINE GLUCONATE [Concomitant]
     Active Substance: CHLORHEXIDINE GLUCONATE
     Dosage: SOL 0.12%
  8. DEXAMETHASONE [Concomitant]
     Active Substance: DEXAMETHASONE
  9. ETODOLAC [Concomitant]
     Active Substance: ETODOLAC
  10. FAMOTIDINE [Concomitant]
     Active Substance: FAMOTIDINE
  11. FLUCONAZOLE [Concomitant]
     Active Substance: FLUCONAZOLE
  12. LOSARTAN POTASSIUM [Concomitant]
     Active Substance: LOSARTAN POTASSIUM

REACTIONS (1)
  - Death [Fatal]
